FAERS Safety Report 8697577 (Version 3)
Quarter: 2012Q4

REPORT INFORMATION
  Report Type: 
  Country: US (occurrence: US)
  Receive Date: 20120801
  Receipt Date: 20121011
  Transmission Date: 20130627
  Serious: Yes (Hospitalization, Other)
  Sender: FDA-Public Use
  Company Number: US-JNJFOC-20120713265

PATIENT
  Age: 70 Year
  Sex: Female
  Weight: 89.7 kg

DRUGS (42)
  1. DOXORUBICIN HYDROCHLORIDE [Suspect]
     Indication: MANTLE CELL LYMPHOMA
     Dosage: 94 mg over 15 minutes for 1 dose on day 5
     Route: 042
  2. VELCADE [Suspect]
     Indication: MANTLE CELL LYMPHOMA
     Route: 042
     Dates: start: 20111231
  3. VELCADE [Suspect]
     Indication: MANTLE CELL LYMPHOMA
     Route: 042
     Dates: start: 20120226
  4. VELCADE [Suspect]
     Indication: MANTLE CELL LYMPHOMA
     Route: 042
  5. VELCADE [Suspect]
     Indication: MANTLE CELL LYMPHOMA
     Dosage: push over 3-5 seconds
     Route: 042
     Dates: start: 20120319, end: 20120319
  6. RITUXIMAB [Suspect]
     Indication: MANTLE CELL LYMPHOMA
     Route: 042
  7. CYCLOPHOSPHAMIDE [Suspect]
     Indication: MANTLE CELL LYMPHOMA
     Route: 065
  8. VINCRISTINE [Suspect]
     Indication: MANTLE CELL LYMPHOMA
     Dosage: on day 5 and day 12
     Route: 042
  9. MESNA [Suspect]
     Indication: MANTLE CELL LYMPHOMA
     Dosage: 1122mg in normal saline 2000 mL over 24 hours daily for 3 days on days 2-4
     Route: 042
  10. DEXAMETHASONE [Suspect]
     Indication: MANTLE CELL LYMPHOMA
     Dosage: on days 2-5 and days 12-15
     Route: 048
  11. METHOTREXATE [Suspect]
     Indication: MANTLE CELL LYMPHOMA
     Route: 065
  12. CYTARABINE [Suspect]
     Indication: MANTLE CELL LYMPHOMA
     Route: 065
  13. NEUPOGEN [Suspect]
     Indication: PRODUCT USED FOR UNKNOWN INDICATION
     Dosage: on 23-MAR and 17-APR (year unspecified)
     Route: 058
  14. LOVENOX [Concomitant]
     Indication: THROMBOSIS
     Route: 058
     Dates: start: 20120330
  15. LOVENOX [Concomitant]
     Indication: THROMBOSIS
     Dosage: Monday through Friday
     Route: 058
     Dates: start: 20120329
  16. DIPHENHYDRAMINE [Concomitant]
     Indication: PREMEDICATION
     Route: 042
  17. CIPRO [Concomitant]
     Route: 048
  18. ZOFRAN [Concomitant]
     Indication: VOMITING
     Dosage: as needed
     Route: 048
  19. ZOFRAN [Concomitant]
     Indication: NAUSEA
     Dosage: as needed
     Route: 048
  20. PREDNISOLONE ACETATE [Concomitant]
     Indication: EYE DISORDER
     Dosage: 03 days
     Route: 047
     Dates: start: 20120330
  21. STOMATOLOGICALS, MOUTH PREPARATIONS [Concomitant]
     Indication: DENTAL DISORDER PROPHYLAXIS
     Dosage: swish and split
     Route: 048
  22. SENNOSIDES-DOCUSATE SODIUM [Concomitant]
     Indication: CONSTIPATION
     Dosage: as needed (once in every 12 hour)
     Route: 048
     Dates: start: 20120331
  23. VALTREX [Concomitant]
     Indication: ANTIVIRAL PROPHYLAXIS
     Dosage: chronic
     Route: 048
     Dates: start: 20120329
  24. UNKNOWN MEDICATION [Concomitant]
     Dosage: 1EA
     Route: 065
     Dates: start: 20120329
  25. MORPHINE [Concomitant]
     Dosage: as needed
     Route: 042
     Dates: start: 20120329
  26. ONDANSETRON HCL [Concomitant]
     Dosage: as needed 31 days
     Route: 042
     Dates: start: 20120329
  27. ONDANSETRON HCL [Concomitant]
     Dosage: as needed 01 day
     Route: 042
     Dates: start: 20120329
  28. POTASSIUM CHLORIDE [Concomitant]
     Route: 065
     Dates: start: 20120329
  29. SODIUM CHLORIDE [Concomitant]
     Route: 042
     Dates: start: 20120330
  30. SODIUM CHLORIDE [Concomitant]
     Route: 042
     Dates: start: 20120330
  31. SODIUM CHLORIDE [Concomitant]
     Dosage: as needed 10 hours
     Route: 042
     Dates: start: 20120329
  32. SODIUM CHLORIDE [Concomitant]
     Route: 042
     Dates: start: 20120401
  33. TRAMADOL HCL [Concomitant]
     Dosage: as needed
     Route: 048
     Dates: start: 20120329
  34. NYSTATIN [Concomitant]
     Dosage: as needed
     Route: 049
     Dates: start: 20120330
  35. SODIUM BICARBONATE [Concomitant]
     Route: 049
     Dates: start: 20120330
  36. HEPARIN [Concomitant]
     Route: 042
     Dates: start: 20120401
  37. SENOKOT S [Concomitant]
     Route: 065
  38. LEUCOVORIN [Concomitant]
     Route: 048
  39. LEUCOVORIN [Concomitant]
     Route: 048
  40. ALLOPURINOL [Concomitant]
     Route: 048
  41. FLUCONAZOLE [Concomitant]
     Route: 048
  42. MEPERIDINE [Concomitant]
     Route: 042

REACTIONS (6)
  - Pleural effusion [Recovered/Resolved]
  - Urinary tract infection [Unknown]
  - Upper respiratory tract infection [Unknown]
  - Leukocytosis [Recovered/Resolved]
  - Peripheral sensory neuropathy [Recovering/Resolving]
  - Sinusitis [Recovered/Resolved]
